FAERS Safety Report 25635292 (Version 1)
Quarter: 2025Q3

REPORT INFORMATION
  Report Type: Spontaneous
  Country: US (occurrence: US)
  Receive Date: 20250802
  Receipt Date: 20250802
  Transmission Date: 20251021
  Serious: Yes (Hospitalization, Other)
  Sender: NOVITIUM PHARMA
  Company Number: US-NOVITIUMPHARMA-2025USNVP01864

PATIENT
  Age: 53 Year
  Sex: Male

DRUGS (4)
  1. PREDNISONE [Suspect]
     Active Substance: PREDNISONE
     Indication: Cough variant asthma
  2. BUDESONIDE\FORMOTEROL [Concomitant]
     Active Substance: BUDESONIDE\FORMOTEROL
     Indication: Cough variant asthma
  3. ALBUTEROL [Concomitant]
     Active Substance: ALBUTEROL
     Indication: Cough variant asthma
  4. DUPILUMAB [Concomitant]
     Active Substance: DUPILUMAB
     Indication: Cough variant asthma

REACTIONS (2)
  - Pneumonia [Recovering/Resolving]
  - Penicillium infection [Recovering/Resolving]
